FAERS Safety Report 9375951 (Version 1)
Quarter: 2013Q2

REPORT INFORMATION
  Report Type: Spontaneous
  Country: US (occurrence: US)
  Receive Date: 20130628
  Receipt Date: 20130628
  Transmission Date: 20140414
  Serious: Yes (Other)
  Sender: FDA-Public Use
  Company Number: US-RB-054646-13

PATIENT
  Age: 32 Year
  Sex: Female

DRUGS (4)
  1. SUBOXONE FILM [Suspect]
     Indication: DRUG DEPENDENCE
     Dosage: SUBOXONE FILM; DOSING DETAILS UNKNOWN - TAKING LESS THAN PRESCRIBED
     Route: 060
     Dates: start: 201301, end: 201303
  2. SUBOXONE FILM [Suspect]
     Dosage: SUBOXONE FILM; 4-8 MG DAILY
     Route: 060
     Dates: start: 201303
  3. NICOTINE [Concomitant]
     Indication: NICOTINE DEPENDENCE
     Dosage: 1/4 PACK PER DAY
     Route: 055
  4. PRE-NATAL VITAMINS [Concomitant]
     Indication: PREGNANCY
     Dosage: ONE DAILY
     Route: 048
     Dates: start: 2013

REACTIONS (4)
  - Underdose [Not Recovered/Not Resolved]
  - Exposure during pregnancy [Recovered/Resolved]
  - Wrong technique in drug usage process [Not Recovered/Not Resolved]
  - Abortion spontaneous [Recovered/Resolved]
